FAERS Safety Report 5463425-1 (Version None)
Quarter: 2007Q3

REPORT INFORMATION
  Report Type: 
  Country: None (occurrence: None)
  Receive Date: 20070920
  Receipt Date: 20070910
  Transmission Date: 20080115
  Serious: Yes (Other)
  Sender: FDA-Public Use
  Company Number: GB-PFIZER INC-2007073637

PATIENT
  Sex: Female

DRUGS (6)
  1. EXUBERA [Suspect]
     Indication: DIABETES MELLITUS
     Route: 055
  2. EXUBERA [Suspect]
  3. CLIMAGEST [Concomitant]
  4. LANTUS [Concomitant]
  5. MENOPACE [Concomitant]
  6. IBUPROFEN [Concomitant]

REACTIONS (3)
  - BLOOD GLUCOSE FLUCTUATION [None]
  - HYPOGLYCAEMIA [None]
  - INCORRECT DOSE ADMINISTERED [None]
